FAERS Safety Report 9051276 (Version 5)
Quarter: 2015Q2

REPORT INFORMATION
  Report Type: Spontaneous
  Country: JP (occurrence: JP)
  Receive Date: 20130206
  Receipt Date: 20150626
  Transmission Date: 20150821
  Serious: Yes (Disabling, Other)
  Sender: FDA-Public Use
  Company Number: JP-UCBSA-077316

PATIENT
  Age: 35 Year
  Sex: Male

DRUGS (6)
  1. EXCEGRAN [Concomitant]
     Active Substance: ZONISAMIDE
     Indication: EPILEPSY
     Dosage: 100 MG, UNK
     Route: 048
     Dates: end: 20140120
  2. ALEVIATIN [Concomitant]
     Active Substance: PHENYTOIN SODIUM
     Indication: EPILEPSY
     Dosage: 600 MG DAILY
     Route: 048
  3. ARIPIPRAZOLE. [Concomitant]
     Active Substance: ARIPIPRAZOLE
     Dosage: 6 MG, 2X/DAY (BID)
  4. KEPPRA [Suspect]
     Active Substance: LEVETIRACETAM
     Dosage: 1000 MG, 3X/DAY (TID)
     Route: 048
     Dates: start: 20120121
  5. KEPPRA [Suspect]
     Active Substance: LEVETIRACETAM
     Indication: EPILEPSY
     Dosage: 500 MG, 2X/DAY (BID)
     Route: 048
     Dates: start: 20111208, end: 20120120
  6. ZONISAMIDE. [Concomitant]
     Active Substance: ZONISAMIDE
     Dosage: 200 MG DAILY
     Route: 048
     Dates: end: 20140120

REACTIONS (2)
  - Hallucination [Recovered/Resolved]
  - Delusion [Recovered/Resolved]

NARRATIVE: CASE EVENT DATE: 20130104
